FAERS Safety Report 4321966-4 (Version None)
Quarter: 2004Q1

REPORT INFORMATION
  Report Type: 
  Country: None (occurrence: None)
  Receive Date: 20040319
  Receipt Date: 20031222
  Transmission Date: 20041129
  Serious: No
  Sender: FDA-Public Use
  Company Number: 200314507

PATIENT
  Age: 44 Year
  Sex: Male
  Weight: 106.5953 kg

DRUGS (1)
  1. LUMIGAN [Suspect]
     Indication: INTRAOCULAR PRESSURE INCREASED
     Dosage: 2 DROP QHS EYE
     Route: 047
     Dates: end: 20031001

REACTIONS (1)
  - DRY SKIN [None]
